FAERS Safety Report 5595868-X (Version None)
Quarter: 2008Q1

REPORT INFORMATION
  Report Type: 
  Country: None (occurrence: None)
  Receive Date: 20080118
  Receipt Date: 20080110
  Transmission Date: 20080703
  Serious: Yes (Hospitalization, Other)
  Sender: FDA-Public Use
  Company Number: US-MERCK-0607USA02546

PATIENT
  Age: 89 Year
  Sex: Female
  Weight: 67 kg

DRUGS (11)
  1. FOSAMAX [Suspect]
     Indication: OSTEITIS DEFORMANS
     Route: 048
     Dates: start: 19950101, end: 20060118
  2. FOSAMAX [Suspect]
     Indication: OSTEOPOROSIS
     Route: 048
     Dates: start: 19950101, end: 20060118
  3. ZOCOR [Concomitant]
     Indication: BLOOD CHOLESTEROL
     Route: 048
  4. TUMS [Concomitant]
     Route: 048
  5. ASPIRIN [Concomitant]
     Route: 065
  6. SYNTHROID [Concomitant]
     Route: 065
  7. HYDROXYZINE HYDROCHLORIDE [Concomitant]
     Route: 065
  8. ORUVAIL [Concomitant]
     Route: 065
  9. ZIAC [Concomitant]
     Route: 065
  10. SPIRONOLACTONE [Concomitant]
     Route: 065
  11. HYDROCODONE BITARTRATE [Concomitant]
     Route: 065

REACTIONS (21)
  - ARTHRALGIA [None]
  - ATRIOVENTRICULAR BLOCK [None]
  - CHANGE OF BOWEL HABIT [None]
  - DEEP VEIN THROMBOSIS [None]
  - DENTAL CARIES [None]
  - DIARRHOEA [None]
  - DIZZINESS [None]
  - EMOTIONAL DISTRESS [None]
  - HOT FLUSH [None]
  - MENTAL STATUS CHANGES [None]
  - NUTRITIONAL CONDITION ABNORMAL [None]
  - OEDEMA [None]
  - OSTEOMYELITIS [None]
  - OSTEONECROSIS [None]
  - PARAESTHESIA [None]
  - PULMONARY HYPERTENSION [None]
  - RASH [None]
  - SICK SINUS SYNDROME [None]
  - TOOTH ABSCESS [None]
  - TOOTH DISORDER [None]
  - URTICARIA [None]
